FAERS Safety Report 11414057 (Version 1)
Quarter: 2015Q3

REPORT INFORMATION
  Report Type: Spontaneous
  Country: US (occurrence: US)
  Receive Date: 20150824
  Receipt Date: 20150824
  Transmission Date: 20151125
  Serious: No
  Sender: FDA-Public Use
  Company Number: GXBR2015US001767

PATIENT
  Age: 23 Day
  Sex: Male

DRUGS (1)
  1. WHITE PETROLATUM [Suspect]
     Active Substance: PETROLATUM
     Indication: PRODUCT USED FOR UNKNOWN INDICATION
     Dosage: UNK DF, UNK
     Route: 061
     Dates: start: 20150723

REACTIONS (1)
  - Accidental exposure to product by child [Recovered/Resolved]
